FAERS Safety Report 15655937 (Version 5)
Quarter: 2019Q3

REPORT INFORMATION
  Report Type: Spontaneous
  Country: JP (occurrence: JP)
  Receive Date: 20181126
  Receipt Date: 20190904
  Transmission Date: 20191004
  Serious: Yes (Death, Life-Threatening, Hospitalization)
  Sender: FDA-Public Use
  Company Number: JP-EISAI MEDICAL RESEARCH-EC-2018-048142

PATIENT
  Age: 83 Year
  Sex: Female

DRUGS (5)
  1. NEXAVAR [Concomitant]
     Active Substance: SORAFENIB
     Indication: HEPATOCELLULAR CARCINOMA
     Dosage: DOSE AND FREQUENCY UNKNOWN
     Route: 065
  2. LENVIMA [Suspect]
     Active Substance: LENVATINIB
     Indication: HEPATOCELLULAR CARCINOMA
     Route: 048
     Dates: start: 20181105, end: 201811
  3. LENVIMA [Suspect]
     Active Substance: LENVATINIB
     Route: 048
     Dates: start: 201811, end: 20181120
  4. LENVIMA [Suspect]
     Active Substance: LENVATINIB
     Route: 048
     Dates: start: 201903, end: 201904
  5. LENVIMA [Suspect]
     Active Substance: LENVATINIB
     Dosage: 4 MG, 5 DAYS ON AND 2 DAYS OFF
     Route: 048
     Dates: start: 20190415, end: 20190418

REACTIONS (6)
  - Platelet count decreased [Recovering/Resolving]
  - Blood pressure decreased [Recovering/Resolving]
  - Fatigue [Recovering/Resolving]
  - Hepatic function abnormal [Recovering/Resolving]
  - Musculoskeletal pain [Recovering/Resolving]
  - Sinus arrest [Recovering/Resolving]

NARRATIVE: CASE EVENT DATE: 201811
